FAERS Safety Report 11259596 (Version 1)
Quarter: 2015Q3

REPORT INFORMATION
  Report Type: Spontaneous
  Country: US (occurrence: None)
  Receive Date: 20150709
  Receipt Date: 20150709
  Transmission Date: 20151125
  Serious: Yes (Other)
  Sender: FDA-Public Use
  Company Number: None

PATIENT
  Age: 26 Year
  Sex: Female

DRUGS (1)
  1. DOXYCYCLINE HYCLATE. [Suspect]
     Active Substance: DOXYCYCLINE HYCLATE
     Indication: LYME DISEASE
     Dosage: 1 PILL TWICE DAILY TAKEN BY MOUTH
     Route: 048
     Dates: start: 20150626, end: 20150629

REACTIONS (11)
  - Quality of life decreased [None]
  - Bowel movement irregularity [None]
  - Malaise [None]
  - Abdominal pain upper [None]
  - Impaired work ability [None]
  - Vaginal discharge [None]
  - Asthenia [None]
  - Headache [None]
  - Insomnia [None]
  - Fatigue [None]
  - Gastrointestinal disorder [None]

NARRATIVE: CASE EVENT DATE: 20150626
